FAERS Safety Report 15122460 (Version 1)
Quarter: 2018Q3

REPORT INFORMATION
  Report Type: Spontaneous
  Country: DE (occurrence: DE)
  Receive Date: 20180709
  Receipt Date: 20180709
  Transmission Date: 20181010
  Serious: Yes (Congenital Anomaly, Other)
  Sender: FDA-Public Use
  Company Number: DE-PFIZER INC-2018269339

PATIENT
  Age: 1 Day
  Sex: Female
  Weight: 2 kg

DRUGS (5)
  1. METHYLDOPA. [Suspect]
     Active Substance: METHYLDOPA
     Indication: HYPERTENSION
     Dosage: UNK
     Route: 064
  2. SERTRALINE HCL [Suspect]
     Active Substance: SERTRALINE HYDROCHLORIDE
     Dosage: 100 MG, DAILY (150 [MG/D ]/ DOSAGE REDUCTION TO 100MG/D, UNKNOWN WHEN)
     Route: 064
     Dates: end: 20170724
  3. PROMETHAZINE [Suspect]
     Active Substance: PROMETHAZINE\PROMETHAZINE HYDROCHLORIDE
     Indication: SLEEP DISORDER
     Dosage: 25 MG, 1X/DAY (25 [MG/D ])
     Route: 064
  4. SERTRALINE HCL [Suspect]
     Active Substance: SERTRALINE HYDROCHLORIDE
     Indication: DEPRESSION
     Dosage: 150 MG, DAILY (150 [MG/D ]/ DOSAGE REDUCTION TO 100MG/D, UNKNOWN WHEN)
     Route: 064
     Dates: start: 20161111
  5. QUETIAPINE. [Suspect]
     Active Substance: QUETIAPINE
     Indication: SCHIZOAFFECTIVE DISORDER
     Dosage: 150 MG, 1X/DAY (150 [MG/D ])
     Route: 064

REACTIONS (4)
  - Ovarian cyst [Unknown]
  - Small for dates baby [Unknown]
  - Ureteric stenosis [Not Recovered/Not Resolved]
  - Maternal exposure during pregnancy [Unknown]

NARRATIVE: CASE EVENT DATE: 20170724
